FAERS Safety Report 12808836 (Version 2)
Quarter: 2018Q2

REPORT INFORMATION
  Report Type: Spontaneous
  Country: FR (occurrence: FR)
  Receive Date: 20161004
  Receipt Date: 20180421
  Transmission Date: 20180711
  Serious: Yes (Hospitalization, Disabling, Other)
  Sender: FDA-Public Use
  Company Number: FR-ABBVIE-16P-056-1744272-00

PATIENT
  Sex: Male

DRUGS (1)
  1. DEPAKINE [Suspect]
     Active Substance: VALPROATE SODIUM
     Indication: MATERNAL EXPOSURE TIMING UNSPECIFIED
     Route: 064

REACTIONS (16)
  - Psychomotor retardation [Recovered/Resolved]
  - Gastroenteritis [Unknown]
  - Joint laxity [Unknown]
  - Sleep disorder [Unknown]
  - Lung disorder [Unknown]
  - Intellectual disability [Not Recovered/Not Resolved]
  - Varicella [Unknown]
  - Kidney infection [Unknown]
  - Speech disorder [Not Recovered/Not Resolved]
  - Abnormal behaviour [Unknown]
  - Educational problem [Unknown]
  - Myopia [Unknown]
  - Nose deformity [Unknown]
  - Eczema [Unknown]
  - Foetal exposure during pregnancy [Unknown]
  - Convulsion in childhood [Unknown]

NARRATIVE: CASE EVENT DATE: 2009
